FAERS Safety Report 7034740-5 (Version None)
Quarter: 2010Q4

REPORT INFORMATION
  Report Type: 
  Country: None (occurrence: None)
  Receive Date: 20101008
  Receipt Date: 20100930
  Transmission Date: 20110411
  Serious: Yes (Other)
  Sender: FDA-Public Use
  Company Number: PHHY2010JP64794

PATIENT

DRUGS (1)
  1. SALAGEN [Suspect]
     Dosage: 15 MG DAILY

REACTIONS (1)
  - DYSHIDROSIS [None]
